FAERS Safety Report 6769637-9 (Version None)
Quarter: 2010Q2

REPORT INFORMATION
  Report Type: 
  Country: None (occurrence: None)
  Receive Date: 20100615
  Receipt Date: 20100609
  Transmission Date: 20101027
  Serious: Yes (Other)
  Sender: FDA-Public Use
  Company Number: JP-PFIZER INC-2010060173

PATIENT
  Age: 45 Year
  Sex: Male

DRUGS (2)
  1. ATARAX [Suspect]
     Indication: SEDATION
     Dosage: 25 MG
     Route: 030
     Dates: start: 20100304, end: 20100304
  2. SOSEGON [Concomitant]
     Indication: SEDATION
     Dosage: 15 MG, 1X/DAY
     Route: 030
     Dates: start: 20100304, end: 20100304

REACTIONS (1)
  - SKIN NECROSIS [None]
